FAERS Safety Report 22090436 (Version 1)
Quarter: 2023Q1

REPORT INFORMATION
  Report Type: Spontaneous
  Country: US (occurrence: None)
  Receive Date: 20230313
  Receipt Date: 20230313
  Transmission Date: 20230418
  Serious: No
  Sender: FDA-Public Use
  Company Number: 2023A049369

PATIENT
  Age: 69 Year
  Sex: Female

DRUGS (2)
  1. SEROQUEL [Suspect]
     Active Substance: QUETIAPINE FUMARATE
     Route: 048
  2. DUPIXENT [Suspect]
     Active Substance: DUPILUMAB
     Indication: Asthma
     Dosage: 400 MG ONCE FOLLOWED BY 200MG EVERY OTHER WEEK
     Route: 057

REACTIONS (5)
  - Eye pruritus [Unknown]
  - Ocular hyperaemia [Unknown]
  - Eye irritation [Unknown]
  - Vision blurred [Unknown]
  - Dizziness [Unknown]
